FAERS Safety Report 21278827 (Version 1)
Quarter: 2022Q3

REPORT INFORMATION
  Report Type: Spontaneous
  Country: BR (occurrence: BR)
  Receive Date: 20220901
  Receipt Date: 20220901
  Transmission Date: 20221027
  Serious: Yes (Death)
  Sender: FDA-Public Use
  Company Number: BR-BAYER-2022A122087

PATIENT
  Sex: Female

DRUGS (1)
  1. XARELTO [Suspect]
     Active Substance: RIVAROXABAN
     Indication: Product used for unknown indication
     Route: 048

REACTIONS (1)
  - Death [Fatal]

NARRATIVE: CASE EVENT DATE: 20210401
